FAERS Safety Report 5903179-5 (Version None)
Quarter: 2008Q3

REPORT INFORMATION
  Report Type: 
  Country: None (occurrence: None)
  Receive Date: 20080930
  Receipt Date: 20080919
  Transmission Date: 20090109
  Serious: Yes (Other)
  Sender: FDA-Public Use
  Company Number: US-JNJFOC-20080905077

PATIENT
  Sex: Female

DRUGS (2)
  1. DOXIL [Suspect]
     Dosage: CYCLE 4
     Route: 065
  2. DOXIL [Suspect]
     Indication: OVARIAN CANCER
     Route: 065

REACTIONS (4)
  - CONTUSION [None]
  - OVARIAN CANCER [None]
  - RASH [None]
  - STOMATITIS [None]
